FAERS Safety Report 4861965-7 (Version None)
Quarter: 2005Q4

REPORT INFORMATION
  Report Type: 
  Country: None (occurrence: None)
  Receive Date: 20051130
  Receipt Date: 20050329
  Transmission Date: 20060501
  Serious: Yes (Other)
  Sender: FDA-Public Use
  Company Number: PHEH2005US02295

PATIENT
  Age: 70 Year
  Sex: Female
  Weight: 81.6 kg

DRUGS (5)
  1. LAMISIL [Suspect]
     Indication: NAIL TINEA
     Dosage: 250 MG, QD, ORAL
     Route: 048
     Dates: start: 20050104, end: 20050315
  2. PAXIL [Concomitant]
  3. LIPITOR /NET/ (ATORVASTATIN CALCIUM) [Concomitant]
  4. RANITIDINE [Concomitant]
  5. VITAMINS NOS (NO INGREDIENTS/SUBSTANCES) [Concomitant]

REACTIONS (3)
  - AGEUSIA [None]
  - DECREASED APPETITE [None]
  - WEIGHT DECREASED [None]
